FAERS Safety Report 5696220-9 (Version None)
Quarter: 2008Q2

REPORT INFORMATION
  Report Type: 
  Country: None (occurrence: None)
  Receive Date: 20080407
  Receipt Date: 20080326
  Transmission Date: 20081010
  Serious: Yes (Other)
  Sender: FDA-Public Use
  Company Number: US-PFIZER INC-2008028100

PATIENT
  Sex: Female
  Weight: 53.5 kg

DRUGS (1)
  1. CHANTIX [Suspect]
     Indication: SMOKING CESSATION THERAPY
     Route: 048

REACTIONS (3)
  - AGGRESSION [None]
  - INSOMNIA [None]
  - PARANOIA [None]
